FAERS Safety Report 9038922 (Version 1)
Quarter: 2013Q1

REPORT INFORMATION
  Report Type: Spontaneous
  Country: US (occurrence: None)
  Receive Date: 20130123
  Receipt Date: 20130123
  Transmission Date: 20140127
  Serious: Yes (Life-Threatening, Hospitalization)
  Sender: FDA-Public Use
  Company Number: None

PATIENT
  Age: 65 Year
  Sex: Female
  Weight: 79.38 kg

DRUGS (1)
  1. CLONIDINE [Suspect]
     Indication: BLOOD PRESSURE
     Dates: start: 202108

REACTIONS (5)
  - Chills [None]
  - Heart rate increased [None]
  - Angina pectoris [None]
  - Cardiomegaly [None]
  - Blood pressure increased [None]
